FAERS Safety Report 4345221-1 (Version None)
Quarter: 2004Q2

REPORT INFORMATION
  Report Type: 
  Country: None (occurrence: None)
  Receive Date: 20040423
  Receipt Date: 20040408
  Transmission Date: 20050107
  Serious: Yes (Hospitalization)
  Sender: FDA-Public Use
  Company Number: JP-ROCHE-364063

PATIENT
  Age: 12 Year
  Sex: Male

DRUGS (4)
  1. TAMIFLU [Suspect]
     Route: 048
     Dates: start: 20040127, end: 20040131
  2. ASVERIN [Concomitant]
     Indication: STRIDOR
     Route: 048
     Dates: start: 20040127, end: 20040131
  3. MUCODYNE [Concomitant]
     Indication: STRIDOR
     Route: 048
     Dates: start: 20040127, end: 20040131
  4. HOKUNALIN [Concomitant]
     Indication: STRIDOR
     Dosage: ROUTE REPROTED AS TO.
     Dates: start: 20040127, end: 20040131

REACTIONS (1)
  - BRONCHITIS ACUTE [None]
